FAERS Safety Report 16824695 (Version 1)
Quarter: 2019Q3

REPORT INFORMATION
  Report Type: Spontaneous
  Country: JP (occurrence: JP)
  Receive Date: 20190918
  Receipt Date: 20190918
  Transmission Date: 20191005
  Serious: Yes (Other)
  Sender: FDA-Public Use
  Company Number: JP-GILEAD-2019-0427923

PATIENT
  Age: 36 Year
  Sex: Female

DRUGS (3)
  1. VIRAMUNE [Suspect]
     Active Substance: NEVIRAPINE
     Indication: HIV INFECTION
     Dosage: UNK
     Route: 065
     Dates: start: 2000
  2. EPIVIR [Concomitant]
     Active Substance: LAMIVUDINE
  3. VIREAD [Suspect]
     Active Substance: TENOFOVIR DISOPROXIL FUMARATE
     Indication: HIV INFECTION
     Dosage: 300 MG
     Route: 065
     Dates: start: 2005

REACTIONS (6)
  - Melaena [Unknown]
  - Anaemia [Unknown]
  - Varices oesophageal [Unknown]
  - Ascites [Unknown]
  - Portal hypertension [Unknown]
  - Large intestinal haemorrhage [Unknown]
